FAERS Safety Report 6850793-9 (Version None)
Quarter: 2010Q3

REPORT INFORMATION
  Report Type: 
  Country: None (occurrence: None)
  Receive Date: 20100716
  Receipt Date: 20071023
  Transmission Date: 20110219
  Serious: Yes (Other)
  Sender: FDA-Public Use
  Company Number: US-PFIZER INC-2007090410

PATIENT
  Sex: Female
  Weight: 54.545 kg

DRUGS (2)
  1. CHANTIX [Suspect]
     Indication: SMOKING CESSATION THERAPY
     Dosage: DAY
     Route: 048
     Dates: start: 20070501, end: 20070715
  2. TOPAMAX [Interacting]
     Indication: MIGRAINE
     Dates: end: 20070715

REACTIONS (6)
  - AGITATION [None]
  - CHEST PAIN [None]
  - DRUG INTERACTION [None]
  - DYSPNOEA [None]
  - ECHOCARDIOGRAM ABNORMAL [None]
  - PALPITATIONS [None]
